FAERS Safety Report 7275184-0 (Version None)
Quarter: 2011Q1

REPORT INFORMATION
  Report Type: 
  Country: None (occurrence: None)
  Receive Date: 20110204
  Receipt Date: 20110124
  Transmission Date: 20110831
  Serious: Yes (Other)
  Sender: FDA-Public Use
  Company Number: PHHY2010CA80829

PATIENT
  Sex: Female

DRUGS (2)
  1. ACLASTA [Suspect]
     Indication: OSTEOPOROSIS
     Dosage: 5 MG
     Dates: start: 20090323
  2. CALTRATE [Concomitant]

REACTIONS (7)
  - LETHARGY [None]
  - FATIGUE [None]
  - MALAISE [None]
  - TRISMUS [None]
  - PYREXIA [None]
  - PAIN [None]
  - CHILLS [None]
